FAERS Safety Report 13570021 (Version 2)
Quarter: 2018Q1

REPORT INFORMATION
  Report Type: Report from Study
  Country: US (occurrence: US)
  Receive Date: 20170522
  Receipt Date: 20180330
  Transmission Date: 20180508
  Serious: Yes (Hospitalization)
  Sender: FDA-Public Use
  Company Number: US-ACTELION-A-US2016-136223

PATIENT
  Age: 69 Year
  Sex: Female

DRUGS (25)
  1. REVATIO [Concomitant]
     Active Substance: SILDENAFIL CITRATE
  2. CITALOPRAM [Concomitant]
     Active Substance: CITALOPRAM HYDROBROMIDE
  3. METHYLPHENIDATE. [Concomitant]
     Active Substance: METHYLPHENIDATE
  4. PERCOCET [Concomitant]
     Active Substance: ACETAMINOPHEN\OXYCODONE HYDROCHLORIDE
     Dosage: 10-325 MG
  5. ESTRACE [Concomitant]
     Active Substance: ESTRADIOL
  6. FLUOXETINE [Concomitant]
     Active Substance: FLUOXETINE HYDROCHLORIDE
  7. MOXIFLOXACIN. [Concomitant]
     Active Substance: MOXIFLOXACIN
  8. WARFARIN [Concomitant]
     Active Substance: WARFARIN
     Dosage: 5 MG, UNK
  9. DIAZEPAM. [Concomitant]
     Active Substance: DIAZEPAM
  10. OXYCODONE [Concomitant]
     Active Substance: OXYCODONE
  11. PREDNISOLONE. [Concomitant]
     Active Substance: PREDNISOLONE
  12. TRACLEER [Suspect]
     Active Substance: BOSENTAN
     Indication: PULMONARY ARTERIAL HYPERTENSION
     Dosage: 125 MG, BID
     Route: 048
     Dates: start: 20151015
  13. TRACLEER [Suspect]
     Active Substance: BOSENTAN
     Dosage: UNK
     Route: 048
  14. PHENTERMINE. [Concomitant]
     Active Substance: PHENTERMINE
  15. POTASSIUM CHLORIDE. [Concomitant]
     Active Substance: POTASSIUM CHLORIDE
  16. CHLORDIAZEPOX [Concomitant]
  17. CHLORDIAZEPOXIDE. [Concomitant]
     Active Substance: CHLORDIAZEPOXIDE
  18. ILEVRO [Concomitant]
     Active Substance: NEPAFENAC
  19. HYDROCODONE BITARTRATE AND ACETAMINOPHEN [Concomitant]
     Active Substance: ACETAMINOPHEN\HYDROCODONE BITARTRATE
  20. FUROSEMIDE. [Concomitant]
     Active Substance: FUROSEMIDE
  21. METAXALONE. [Concomitant]
     Active Substance: METAXALONE
  22. MYRBETRIQ [Concomitant]
     Active Substance: MIRABEGRON
  23. CLONAZEPAM. [Concomitant]
     Active Substance: CLONAZEPAM
  24. OXYCODONE/APAP [Concomitant]
     Active Substance: ACETAMINOPHEN\OXYCODONE HYDROCHLORIDE
  25. AMOXICILLIN. [Concomitant]
     Active Substance: AMOXICILLIN
     Dosage: 500 MG, UNK

REACTIONS (5)
  - Balance disorder [Not Recovered/Not Resolved]
  - Memory impairment [Not Recovered/Not Resolved]
  - Back injury [Unknown]
  - Drug dose omission [Not Recovered/Not Resolved]
  - Fall [Not Recovered/Not Resolved]

NARRATIVE: CASE EVENT DATE: 2017
